FAERS Safety Report 6242583-5 (Version None)
Quarter: 2009Q2

REPORT INFORMATION
  Report Type: 
  Country: None (occurrence: None)
  Receive Date: 20090617
  Receipt Date: 20071126
  Transmission Date: 20091009
  Serious: No
  Sender: FDA-Public Use
  Company Number: 269752

PATIENT
  Age: 75 Year
  Sex: Female

DRUGS (1)
  1. LEVEMIR [Suspect]
     Indication: TYPE 2 DIABETES MELLITUS
     Dosage: 100 IU, QD, SUBCUTANEOUS
     Route: 058

REACTIONS (2)
  - INJECTION SITE IRRITATION [None]
  - INJECTION SITE PRURITUS [None]
